FAERS Safety Report 8171671-1 (Version None)
Quarter: 2012Q1

REPORT INFORMATION
  Report Type: 
  Country: None (occurrence: None)
  Receive Date: 20120113
  Receipt Date: 20111212
  Transmission Date: 20120608
  Serious: No
  Sender: FDA-Public Use
  Company Number: PHEH2011US011382

PATIENT
  Sex: Female

DRUGS (1)
  1. ILARIS [Suspect]
     Indication: JUVENILE ARTHRITIS
     Dosage: 150 MG, UNK

REACTIONS (1)
  - DIARRHOEA [None]
